FAERS Safety Report 9645444 (Version 1)
Quarter: 2013Q4

REPORT INFORMATION
  Report Type: Spontaneous
  Country: DE (occurrence: DE)
  Receive Date: 20131025
  Receipt Date: 20131025
  Transmission Date: 20140711
  Serious: Yes (Life-Threatening)
  Sender: FDA-Public Use
  Company Number: GXKR2013DE003354

PATIENT
  Age: 81 Year
  Sex: Female
  Weight: 70 kg

DRUGS (13)
  1. BUSPIRONE HYDROCHLORIDE [Suspect]
     Indication: ANXIETY
     Dosage: 5 MG, TID
     Route: 048
     Dates: start: 20130717
  2. BUSPIRONE HYDROCHLORIDE [Interacting]
     Dosage: 10 MG, TID
     Route: 048
     Dates: start: 20130819
  3. MARCUMAR [Interacting]
     Indication: ATRIAL FIBRILLATION
     Dosage: UNK MG, ACCORDING TO QUICK
  4. MARCUMAR [Interacting]
     Indication: CEREBROVASCULAR ACCIDENT
  5. ALENDRON [Concomitant]
     Dosage: 70 MG, QD
     Route: 048
  6. AMLODIPINE [Concomitant]
     Dosage: 1 DF, QD
  7. BISOPROLOL [Concomitant]
     Dosage: 5 MG, BID
     Route: 048
  8. CALCIVIT FORTE [Concomitant]
     Dosage: 1 DF, QD
     Route: 048
  9. L-THYROXIN [Concomitant]
     Dosage: 50 UG, QD
     Route: 048
  10. PANTOPRAZOL [Concomitant]
     Dosage: 40 MG, QD
     Route: 048
  11. SIMVASTATIN [Concomitant]
     Dosage: 1 DF, QD
  12. XELEVIA [Concomitant]
     Dosage: 50 MG, QD
     Route: 048
  13. MELPERONE [Concomitant]

REACTIONS (1)
  - Prothrombin time shortened [Recovered/Resolved]
